FAERS Safety Report 6039294-8 (Version None)
Quarter: 2009Q1

REPORT INFORMATION
  Report Type: 
  Country: None (occurrence: None)
  Receive Date: 20090115
  Receipt Date: 20090113
  Transmission Date: 20090719
  Serious: No
  Sender: FDA-Public Use
  Company Number: US-B.I. PHARMACEUTICALS,INC./RIDGEFIELD-2009-BP-00455BP

PATIENT
  Age: 43 Year
  Sex: Female

DRUGS (3)
  1. VIRAMUNE [Suspect]
     Route: 048
  2. BACTRIM [Suspect]
  3. TRUVADA [Concomitant]

REACTIONS (3)
  - NAUSEA [None]
  - RASH [None]
  - VOMITING [None]
